FAERS Safety Report 24136097 (Version 3)
Quarter: 2024Q4

REPORT INFORMATION
  Report Type: Report from Study
  Country: CA (occurrence: CA)
  Receive Date: 20240725
  Receipt Date: 20241003
  Transmission Date: 20250115
  Serious: Yes (Hospitalization, Disabling, Other)
  Sender: EXELIXIS
  Company Number: CA-IPSEN Group, Research and Development-2021-11363

PATIENT
  Age: 57 Year
  Sex: Female
  Weight: 60 kg

DRUGS (9)
  1. CABOMETYX [Suspect]
     Active Substance: CABOZANTINIB S-MALATE
     Indication: Gastroenteropancreatic neuroendocrine tumour disease
     Dosage: 40 MG, BID
     Route: 048
  2. CABOMETYX [Suspect]
     Active Substance: CABOZANTINIB S-MALATE
     Indication: Off label use
  3. LANREOTIDE ACETATE [Suspect]
     Active Substance: LANREOTIDE ACETATE
     Indication: Gastroenteropancreatic neuroendocrine tumour disease
     Dosage: SOMATULINE 120MG/0.5ML,120 MG Q2WEEKS, LOT: 000436, EXPIRY DATE: 31-DEC-2026, DEEP SC
     Dates: start: 20200313
  4. LANREOTIDE ACETATE [Suspect]
     Active Substance: LANREOTIDE ACETATE
     Dosage: 120 MG, Q3WEEKS
     Route: 058
     Dates: start: 20210602
  5. LANREOTIDE ACETATE [Suspect]
     Active Substance: LANREOTIDE ACETATE
     Dosage: DOSE INCREASED
     Route: 058
  6. EVEROLIMUS [Suspect]
     Active Substance: EVEROLIMUS
     Indication: Constipation
     Dosage: UNK
     Route: 065
  7. DICLOFENAC POTASSIUM\METAXALONE [Suspect]
     Active Substance: DICLOFENAC POTASSIUM\METAXALONE
     Indication: Pain in extremity
     Dosage: 1 MG
     Route: 065
     Dates: start: 20240411
  8. METOCLOPRAMIDE [Concomitant]
     Active Substance: METOCLOPRAMIDE
     Dosage: UNK
     Route: 048
  9. AMLODIPINE [Concomitant]
     Active Substance: AMLODIPINE BESYLATE
     Dosage: UNK

REACTIONS (68)
  - Gastric ulcer [Not Recovered/Not Resolved]
  - Pyelonephritis acute [Unknown]
  - Pelvic neoplasm [Unknown]
  - Intestinal obstruction [Recovered/Resolved]
  - Renal disorder [Unknown]
  - Genitourinary tract neoplasm [Unknown]
  - Abdominal distension [Unknown]
  - Vena cava thrombosis [Not Recovered/Not Resolved]
  - Haematemesis [Recovered/Resolved]
  - Back pain [Not Recovered/Not Resolved]
  - Metastases to abdominal cavity [Unknown]
  - Malignant neoplasm progression [Unknown]
  - Metastases to spine [Unknown]
  - Metastases to liver [Unknown]
  - Abdominal pain [Recovered/Resolved]
  - Nausea [Recovered/Resolved]
  - Vomiting [Recovered/Resolved]
  - Abdominal pain [Recovered/Resolved]
  - Abdominal pain upper [Unknown]
  - Salpingectomy [Unknown]
  - Oophorectomy [Unknown]
  - Hospitalisation [Unknown]
  - Therapeutic product ineffective [Unknown]
  - Metastases to lymph nodes [Not Recovered/Not Resolved]
  - Metastases to spinal cord [Not Recovered/Not Resolved]
  - Metastases to liver [Not Recovered/Not Resolved]
  - Metastases to lung [Not Recovered/Not Resolved]
  - Hot flush [Not Recovered/Not Resolved]
  - Pyrexia [Recovered/Resolved]
  - Injection site discomfort [Unknown]
  - Flushing [Unknown]
  - Sleep disorder [Unknown]
  - Weight increased [Not Recovered/Not Resolved]
  - Gastrointestinal disorder [Unknown]
  - Tumour pain [Unknown]
  - Cardiac disorder [Unknown]
  - Renal pain [Unknown]
  - Pulmonary pain [Unknown]
  - Abnormal faeces [Unknown]
  - Toxicity to various agents [Unknown]
  - Heart rate increased [Unknown]
  - Frequent bowel movements [Unknown]
  - Chest pain [Recovered/Resolved]
  - Oedema peripheral [Not Recovered/Not Resolved]
  - Malaise [Unknown]
  - Abdominal pain lower [Unknown]
  - Diarrhoea [Not Recovered/Not Resolved]
  - Blood creatinine increased [Not Recovered/Not Resolved]
  - Fatigue [Recovered/Resolved]
  - Pain in extremity [Not Recovered/Not Resolved]
  - Blood creatinine increased [Unknown]
  - Hypertension [Recovering/Resolving]
  - Diarrhoea [Unknown]
  - Asthenia [Unknown]
  - Nausea [Recovering/Resolving]
  - Vomiting [Not Recovered/Not Resolved]
  - Decreased appetite [Recovering/Resolving]
  - Weight decreased [Unknown]
  - Constipation [Not Recovered/Not Resolved]
  - Drug ineffective [Unknown]
  - Hypoaesthesia [Not Recovered/Not Resolved]
  - Hypoaesthesia [Not Recovered/Not Resolved]
  - Oedema [Not Recovered/Not Resolved]
  - Product storage error [Unknown]
  - Wrong technique in product usage process [Unknown]
  - Off label use [Unknown]
  - Inappropriate schedule of product administration [Unknown]
  - Off label use [Unknown]

NARRATIVE: CASE EVENT DATE: 20210101
